FAERS Safety Report 16661857 (Version 5)
Quarter: 2019Q3

REPORT INFORMATION
  Report Type: Report from Study
  Country: VN (occurrence: VN)
  Receive Date: 20190802
  Receipt Date: 20190928
  Transmission Date: 20191004
  Serious: Yes (Hospitalization, Disabling, Other)
  Sender: FDA-Public Use
  Company Number: PHHY2019VN175906

PATIENT
  Age: 67 Year
  Sex: Male
  Weight: 57 kg

DRUGS (3)
  1. FRAIZERON [Suspect]
     Active Substance: SECUKINUMAB
     Indication: PSORIASIS
     Dosage: 300 MG, UNK
     Route: 058
     Dates: start: 20190524, end: 20190809
  2. PARACETAMOL [Concomitant]
     Active Substance: ACETAMINOPHEN
     Indication: SKIN WOUND
     Dosage: 500 MG, QD
     Route: 048
     Dates: start: 20190805
  3. AUGMENTIN [Concomitant]
     Active Substance: AMOXICILLIN\CLAVULANATE POTASSIUM
     Indication: SKIN WOUND
     Dosage: 1 G, QD
     Route: 048
     Dates: start: 20190805

REACTIONS (21)
  - Confusional state [Unknown]
  - Hyperkeratosis [Unknown]
  - Drug ineffective [Unknown]
  - Scab [Not Recovered/Not Resolved]
  - Skin papilloma [Not Recovered/Not Resolved]
  - Neuropathy peripheral [Not Recovered/Not Resolved]
  - Skin swelling [Unknown]
  - Psoriasis [Not Recovered/Not Resolved]
  - Rash pruritic [Not Recovered/Not Resolved]
  - Erythema [Not Recovered/Not Resolved]
  - Peripheral swelling [Not Recovered/Not Resolved]
  - Hallucination [Unknown]
  - Abscess [Unknown]
  - Parkinson^s disease [Not Recovered/Not Resolved]
  - Tremor [Not Recovered/Not Resolved]
  - Acanthosis [Unknown]
  - Sleep talking [Unknown]
  - Insomnia [Unknown]
  - Dermatitis [Unknown]
  - Skin exfoliation [Not Recovered/Not Resolved]
  - Dysstasia [Not Recovered/Not Resolved]

NARRATIVE: CASE EVENT DATE: 20190705
